FAERS Safety Report 22275571 (Version 4)
Quarter: 2023Q4

REPORT INFORMATION
  Report Type: Spontaneous
  Country: US (occurrence: US)
  Receive Date: 20230502
  Receipt Date: 20231116
  Transmission Date: 20240109
  Serious: No
  Sender: FDA-Public Use
  Company Number: US-SA-SAC20230427001599

PATIENT
  Age: 58 Year
  Sex: Female

DRUGS (1)
  1. DUPIXENT [Suspect]
     Active Substance: DUPILUMAB
     Indication: Asthma
     Dosage: 300 MG, QOW
     Route: 058

REACTIONS (7)
  - Lacrimation increased [Unknown]
  - Scoliosis [Unknown]
  - Back pain [Unknown]
  - Injection site rash [Unknown]
  - Eye pruritus [Unknown]
  - Injection site erythema [Not Recovered/Not Resolved]
  - Arthralgia [Unknown]
